FAERS Safety Report 11715571 (Version 2)
Quarter: 2015Q4

REPORT INFORMATION
  Report Type: Spontaneous
  Country: US (occurrence: US)
  Receive Date: 20151104
  Receipt Date: 20151110
  Transmission Date: 20160304
  Serious: No
  Sender: FDA-Public Use
  Company Number: US-ELI_LILLY_AND_COMPANY-US201108002948

PATIENT
  Age: 68 Year
  Sex: Female

DRUGS (3)
  1. FORTEO [Suspect]
     Active Substance: TERIPARATIDE
     Indication: OSTEOPOROSIS
     Dosage: 20 UG, QD
     Dates: start: 20101229
  2. FORTEO [Suspect]
     Active Substance: TERIPARATIDE
     Dosage: 20 UG, QD
  3. FORTEO [Suspect]
     Active Substance: TERIPARATIDE
     Dosage: 20 UG, QD
     Route: 065

REACTIONS (14)
  - Arthritis [Not Recovered/Not Resolved]
  - Rash pruritic [Recovering/Resolving]
  - Feeling abnormal [Unknown]
  - Constipation [Unknown]
  - Pain [Unknown]
  - Arthralgia [Unknown]
  - Stress [Unknown]
  - Pain in extremity [Unknown]
  - Skin reaction [Recovering/Resolving]
  - Headache [Unknown]
  - Nodule [Unknown]
  - Eye pain [Unknown]
  - Peripheral swelling [Unknown]
  - Musculoskeletal disorder [Unknown]

NARRATIVE: CASE EVENT DATE: 201109
